FAERS Safety Report 21132483 (Version 1)
Quarter: 2022Q3

REPORT INFORMATION
  Report Type: Spontaneous
  Country: BE (occurrence: BE)
  Receive Date: 20220726
  Receipt Date: 20220726
  Transmission Date: 20221027
  Serious: Yes (Hospitalization)
  Sender: FDA-Public Use
  Company Number: BE-GRUNENTHAL-2022-106229

PATIENT
  Age: 50 Year
  Sex: Female

DRUGS (1)
  1. QUTENZA [Suspect]
     Active Substance: CAPSAICIN
     Indication: Product used for unknown indication
     Dosage: 4 DOSAGE FORM
     Route: 065

REACTIONS (2)
  - Procedural pain [Unknown]
  - Erythema [Unknown]
